FAERS Safety Report 8393934-7 (Version None)
Quarter: 2012Q2

REPORT INFORMATION
  Report Type: 
  Country: None (occurrence: None)
  Receive Date: 20120516
  Receipt Date: 20120515
  Transmission Date: 20120825
  Serious: Yes (Death, Hospitalization)
  Sender: FDA-Public Use
  Company Number: 2012SP024880

PATIENT
  Age: 18 Year
  Sex: Female

DRUGS (2)
  1. NOXAFIL [Suspect]
     Indication: ASPERGILLOSIS
     Dosage: 400 MG;BID;PO
     Route: 048
     Dates: start: 20111220, end: 20120303
  2. BACTRIM [Concomitant]

REACTIONS (1)
  - LEUKAEMIA RECURRENT [None]
